FAERS Safety Report 5526773-2 (Version None)
Quarter: 2007Q4

REPORT INFORMATION
  Report Type: 
  Country: None (occurrence: None)
  Receive Date: 20071127
  Receipt Date: 20071115
  Transmission Date: 20080405
  Serious: Yes (Other)
  Sender: FDA-Public Use
  Company Number: TW-ROCHE-532227

PATIENT
  Age: 40 Year

DRUGS (1)
  1. PEGASYS [Suspect]
     Indication: HEPATITIS B
     Route: 051
     Dates: start: 20070101

REACTIONS (1)
  - HEPATIC NEOPLASM MALIGNANT [None]
